FAERS Safety Report 11993960 (Version 2)
Quarter: 2016Q1

REPORT INFORMATION
  Report Type: Spontaneous
  Country: US (occurrence: US)
  Receive Date: 20160203
  Receipt Date: 20160225
  Transmission Date: 20160526
  Serious: No
  Sender: FDA-Public Use
  Company Number: US-ROXANE LABORATORIES, INC.-2016-RO-00168RO

PATIENT
  Age: 9 Year
  Sex: Male

DRUGS (1)
  1. PREDNISONE ORAL SOLUTION USP, 5MG/5ML [Suspect]
     Active Substance: PREDNISONE
     Indication: PRODUCT USED FOR UNKNOWN INDICATION
     Dosage: 40 ML
     Route: 048

REACTIONS (2)
  - Throat irritation [Unknown]
  - Product quality issue [Unknown]
